FAERS Safety Report 22197472 (Version 2)
Quarter: 2023Q2

REPORT INFORMATION
  Report Type: Report from Study
  Country: US (occurrence: US)
  Receive Date: 20230411
  Receipt Date: 20230428
  Transmission Date: 20230722
  Serious: Yes (Hospitalization)
  Sender: FDA-Public Use
  Company Number: US-JNJFOC-20230328876

PATIENT
  Age: 59 Year
  Sex: Male
  Weight: 81.8 kg

DRUGS (29)
  1. TECLISTAMAB [Suspect]
     Active Substance: TECLISTAMAB
     Indication: Plasma cell myeloma refractory
     Route: 058
     Dates: start: 20220920, end: 20220922
  2. TECLISTAMAB [Suspect]
     Active Substance: TECLISTAMAB
     Route: 058
     Dates: start: 20220926, end: 20230306
  3. DARATUMUMAB [Suspect]
     Active Substance: DARATUMUMAB
     Indication: Plasma cell myeloma refractory
     Dosage: 15ML
     Route: 058
     Dates: start: 20220919, end: 20230306
  4. ASPIRIN [Concomitant]
     Active Substance: ASPIRIN
     Indication: General physical condition
     Route: 048
     Dates: start: 20210401
  5. MELATONIN [Concomitant]
     Active Substance: MELATONIN
     Indication: Insomnia
     Route: 048
     Dates: start: 20210401
  6. GLUTAMIC ACID [Concomitant]
     Active Substance: GLUTAMIC ACID
     Indication: General physical condition
     Route: 048
     Dates: start: 20210401
  7. HERBALS\TURMERIC [Concomitant]
     Active Substance: HERBALS\TURMERIC
     Indication: General physical condition
     Route: 048
     Dates: start: 20210401
  8. FORTIFY OPTIMA [Concomitant]
     Indication: General physical condition
     Route: 048
     Dates: start: 20210401
  9. ACETYLCARNITINE HCL [Concomitant]
     Indication: General physical condition
     Route: 048
     Dates: start: 20210401
  10. CHOLECALCIFEROL [Concomitant]
     Active Substance: CHOLECALCIFEROL
     Indication: General physical condition
     Route: 048
     Dates: start: 20210401
  11. VITAMINS [Concomitant]
     Active Substance: VITAMINS
     Indication: General physical condition
     Route: 048
     Dates: start: 20210401
  12. CALCIUM CITRATE [Concomitant]
     Active Substance: CALCIUM CITRATE
     Indication: General physical condition
     Route: 048
     Dates: start: 20210401
  13. OMEGA-3 FATTY ACIDS [Concomitant]
     Active Substance: OMEGA-3 FATTY ACIDS
     Indication: General physical condition
     Route: 048
     Dates: start: 20210401
  14. ASCORBIC ACID [Concomitant]
     Active Substance: ASCORBIC ACID
     Indication: General physical condition
     Route: 048
     Dates: start: 20210401
  15. ACETAMINOPHEN [Concomitant]
     Active Substance: ACETAMINOPHEN
     Route: 048
     Dates: start: 20210408
  16. ONDANSETRON [Concomitant]
     Active Substance: ONDANSETRON
     Indication: Prophylaxis of nausea and vomiting
     Route: 048
     Dates: start: 20210408
  17. LECITHIN [Concomitant]
     Active Substance: LECITHIN
     Indication: General physical condition
     Route: 048
     Dates: start: 20211223
  18. COENZYME Q10 [Concomitant]
     Active Substance: DIETARY SUPPLEMENT\UBIDECARENONE
     Indication: General physical condition
     Route: 048
     Dates: start: 20211223
  19. ALLIUM CEPA [Concomitant]
     Active Substance: ONION
     Indication: General physical condition
     Route: 048
     Dates: start: 20211223
  20. COLESTIPOL [Concomitant]
     Active Substance: COLESTIPOL
     Indication: Hyperlipidaemia
     Route: 048
     Dates: start: 20220217
  21. VALACYCLOVIR HYDROCHLORIDE [Concomitant]
     Active Substance: VALACYCLOVIR HYDROCHLORIDE
     Indication: Infection prophylaxis
     Route: 048
     Dates: start: 20220517
  22. POTASSIUM CHLORIDE [Concomitant]
     Active Substance: POTASSIUM CHLORIDE
     Indication: Hypokalaemia
     Route: 048
     Dates: start: 20220718
  23. MAGNESIUM OXIDE [Concomitant]
     Active Substance: MAGNESIUM OXIDE
     Route: 048
     Dates: start: 20220809
  24. MYOCALM [PIRACETAM] [Concomitant]
     Indication: General physical condition
     Dosage: 50/100
     Route: 048
     Dates: start: 20220920
  25. TYLENOL [Concomitant]
     Active Substance: ACETAMINOPHEN
     Indication: Headache
     Route: 048
     Dates: start: 20220925
  26. MUCINEX [Concomitant]
     Active Substance: GUAIFENESIN
     Indication: Pneumonia
     Dosage: 1 DOSAGE FORM
     Route: 048
     Dates: start: 20221220
  27. DULCOLAX (BISACODYL) [Concomitant]
     Active Substance: BISACODYL
     Indication: Constipation prophylaxis
     Route: 048
     Dates: start: 20230309, end: 20230310
  28. HEPARIN [Concomitant]
     Active Substance: HEPARIN SODIUM
     Indication: Thrombosis prophylaxis
     Dosage: 5000
     Route: 058
     Dates: start: 20230309, end: 20230313
  29. SODIUM CHLORIDE [Concomitant]
     Active Substance: SODIUM CHLORIDE
     Indication: Prophylaxis against dehydration
     Route: 042
     Dates: start: 20230309, end: 20230313

REACTIONS (2)
  - COVID-19 [Not Recovered/Not Resolved]
  - Pneumonia [Not Recovered/Not Resolved]

NARRATIVE: CASE EVENT DATE: 20230309
